FAERS Safety Report 16110445 (Version 1)
Quarter: 2019Q1

REPORT INFORMATION
  Report Type: Spontaneous
  Country: US (occurrence: US)
  Receive Date: 20190325
  Receipt Date: 20190325
  Transmission Date: 20190418
  Serious: Yes (Life-Threatening, Hospitalization, Other)
  Sender: FDA-Public Use
  Company Number: US-AXELLIA-002324

PATIENT
  Age: 28 Year
  Sex: Female

DRUGS (7)
  1. BACITRACIN. [Suspect]
     Active Substance: BACITRACIN
     Indication: ANTIBIOTIC PROPHYLAXIS
  2. FENTANYL. [Concomitant]
     Active Substance: FENTANYL
     Indication: GENERAL ANAESTHESIA
  3. SUXAMETHONIUM [Concomitant]
     Active Substance: SUCCINYLCHOLINE
     Indication: GENERAL ANAESTHESIA
  4. PROPOFOL. [Concomitant]
     Active Substance: PROPOFOL
     Indication: GENERAL ANAESTHESIA
  5. PROPOFOL. [Concomitant]
     Active Substance: PROPOFOL
     Indication: GENERAL ANAESTHESIA
  6. MIDAZOLAM [Concomitant]
     Active Substance: MIDAZOLAM HYDROCHLORIDE
     Indication: GENERAL ANAESTHESIA
  7. REMIFENTANIL/REMIFENTANIL HYDROCHLORIDE [Concomitant]
     Indication: GENERAL ANAESTHESIA

REACTIONS (1)
  - Anaphylactic shock [Recovered/Resolved]
